FAERS Safety Report 8491960-0 (Version None)
Quarter: 2012Q3

REPORT INFORMATION
  Report Type: 
  Country: None (occurrence: None)
  Receive Date: 20120706
  Receipt Date: 20120628
  Transmission Date: 20120928
  Serious: Yes (Hospitalization)
  Sender: FDA-Public Use
  Company Number: JP-ABBOTT-12P-087-0951124-00

PATIENT
  Sex: Female

DRUGS (3)
  1. HUMIRA [Suspect]
     Indication: RHEUMATOID ARTHRITIS
     Route: 058
     Dates: start: 20110501, end: 20110801
  2. HUMIRA [Suspect]
     Dates: start: 20120201, end: 20120301
  3. HUMIRA [Suspect]
     Dates: start: 20120601, end: 20120601

REACTIONS (4)
  - MALAISE [None]
  - RHEUMATOID ARTHRITIS [None]
  - ERYTHEMA [None]
  - DRUG INEFFECTIVE [None]
